FAERS Safety Report 20618620 (Version 2)
Quarter: 2023Q2

REPORT INFORMATION
  Report Type: Spontaneous
  Country: US (occurrence: US)
  Receive Date: 20220322
  Receipt Date: 20230411
  Transmission Date: 20230721
  Serious: Yes (Hospitalization)
  Sender: FDA-Public Use
  Company Number: US-NOVARTISPH-NVSC2022US064029

PATIENT
  Age: 23 Year
  Sex: Female

DRUGS (9)
  1. PANTOPRAZOLE [Suspect]
     Active Substance: PANTOPRAZOLE
     Indication: Prophylaxis
     Dosage: UNK
     Route: 065
  2. ATOVAQUONE [Suspect]
     Active Substance: ATOVAQUONE
     Indication: Prophylaxis
     Dosage: UNK
     Route: 065
  3. UNSPECIFIED INGREDIENT [Suspect]
     Active Substance: UNSPECIFIED INGREDIENT
     Indication: Still^s disease
     Dosage: UNK
     Route: 065
  4. UNSPECIFIED INGREDIENT [Suspect]
     Active Substance: UNSPECIFIED INGREDIENT
     Indication: Haemophagocytic lymphohistiocytosis
  5. ALLOPURINOL [Suspect]
     Active Substance: ALLOPURINOL
     Indication: Tumour lysis syndrome
     Dosage: UNK
     Route: 065
  6. ANAKINRA [Concomitant]
     Active Substance: ANAKINRA
     Indication: Still^s disease
     Dosage: UNK
     Route: 065
  7. ANAKINRA [Concomitant]
     Active Substance: ANAKINRA
     Indication: Haemophagocytic lymphohistiocytosis
  8. DEXAMETHASONE [Concomitant]
     Active Substance: DEXAMETHASONE
     Indication: Still^s disease
     Dosage: UNK
     Route: 065
  9. DEXAMETHASONE [Concomitant]
     Active Substance: DEXAMETHASONE
     Indication: Haemophagocytic lymphohistiocytosis

REACTIONS (1)
  - Toxic epidermal necrolysis [Recovered/Resolved]
